FAERS Safety Report 21622833 (Version 8)
Quarter: 2023Q2

REPORT INFORMATION
  Report Type: Report from Study
  Country: US (occurrence: US)
  Receive Date: 20221121
  Receipt Date: 20230506
  Transmission Date: 20230722
  Serious: Yes (Hospitalization, Other)
  Sender: FDA-Public Use
  Company Number: US-ABBVIE-4207494

PATIENT
  Age: 75 Year
  Sex: Female

DRUGS (4)
  1. HUMIRA [Suspect]
     Active Substance: ADALIMUMAB
     Indication: Crohn^s disease
     Dosage: CITRATE FREE, FORM STRENGTH: 40 MILLIGRAM
     Route: 058
     Dates: start: 20220708, end: 20221117
  2. HUMIRA [Suspect]
     Active Substance: ADALIMUMAB
     Dosage: CITRATE FREE, FORM STRENGTH: 40 MILLIGRAM?LAST ADMIN DATE 2023
     Route: 058
     Dates: start: 20230220
  3. HUMIRA [Suspect]
     Active Substance: ADALIMUMAB
     Dosage: CITRATE FREE, FORM STRENGTH: 40 MILLIGRAM
     Route: 058
     Dates: start: 20221202
  4. HUMIRA [Suspect]
     Active Substance: ADALIMUMAB
     Route: 058
     Dates: start: 20220708

REACTIONS (14)
  - Clostridium difficile colitis [Recovered/Resolved]
  - Ulcer [Recovering/Resolving]
  - Anal dilatation [Unknown]
  - Dizziness [Unknown]
  - Asthenia [Unknown]
  - Malaise [Unknown]
  - Malnutrition [Recovering/Resolving]
  - Wound infection [Recovering/Resolving]
  - Living in residential institution [Recovering/Resolving]
  - Mastication disorder [Unknown]
  - COVID-19 [Recovering/Resolving]
  - Gastrostomy [Unknown]
  - Decreased appetite [Not Recovered/Not Resolved]
  - Diarrhoea [Unknown]

NARRATIVE: CASE EVENT DATE: 20221115
